FAERS Safety Report 5019825-7 (Version None)
Quarter: 2006Q2

REPORT INFORMATION
  Report Type: 
  Country: None (occurrence: None)
  Receive Date: 20060607
  Receipt Date: 20060530
  Transmission Date: 20061013
  Serious: Yes (Life-Threatening, Hospitalization)
  Sender: FDA-Public Use
  Company Number: JP-NOVOPROD-253792

PATIENT
  Age: 47 Year
  Sex: Female
  Weight: 43 kg

DRUGS (3)
  1. PENFILL N CHU [Suspect]
     Indication: DIABETES MELLITUS INSULIN-DEPENDENT
     Dosage: 28 IU, QD (20+0+ 8)
     Route: 058
     Dates: start: 20050204, end: 20050204
  2. BASEN [Concomitant]
     Indication: DIABETES MELLITUS INSULIN-DEPENDENT
     Route: 048
     Dates: end: 20050204
  3. BROTIZOLAM [Concomitant]
     Dosage: .5 MG, QD
     Route: 048

REACTIONS (2)
  - HYPOGLYCAEMIC COMA [None]
  - SUICIDE ATTEMPT [None]
